FAERS Safety Report 5391722-7 (Version None)
Quarter: 2007Q3

REPORT INFORMATION
  Report Type: 
  Country: None (occurrence: None)
  Receive Date: 20070719
  Receipt Date: 20070710
  Transmission Date: 20080115
  Serious: Yes (Disabling, Other)
  Sender: FDA-Public Use
  Company Number: US-MERCK-0609USA07920

PATIENT
  Age: 53 Year
  Sex: Female

DRUGS (1)
  1. FOSAMAX [Suspect]
     Indication: OSTEOPENIA
     Route: 048
     Dates: start: 20000711, end: 20010719

REACTIONS (20)
  - ADVERSE EVENT [None]
  - ANXIETY [None]
  - ARTHRALGIA [None]
  - CHOLECYSTECTOMY [None]
  - DEPRESSION [None]
  - EAR PAIN [None]
  - FACIAL PAIN [None]
  - GASTROOESOPHAGEAL REFLUX DISEASE [None]
  - HYPERSENSITIVITY [None]
  - MUSCULOSKELETAL PAIN [None]
  - NECK PAIN [None]
  - OEDEMA [None]
  - OSTEONECROSIS [None]
  - PAIN IN EXTREMITY [None]
  - PALATAL DISORDER [None]
  - PALATAL OEDEMA [None]
  - SINUSITIS [None]
  - SOFT TISSUE INFECTION [None]
  - STOMACH DISCOMFORT [None]
  - SURGERY [None]
